FAERS Safety Report 7338301-X (Version None)
Quarter: 2011Q1

REPORT INFORMATION
  Report Type: 
  Country: None (occurrence: None)
  Receive Date: 20110308
  Receipt Date: 20110302
  Transmission Date: 20110831
  Serious: Yes (Life-Threatening, Hospitalization)
  Sender: FDA-Public Use
  Company Number: ES-PFIZER INC-2011045230

PATIENT
  Age: 57 Year
  Sex: Female

DRUGS (10)
  1. OMEPRAZOLE [Concomitant]
  2. CYMBALTA [Suspect]
     Dosage: 60 MG, 1X/DAY
     Route: 048
  3. NOLOTIL [Concomitant]
  4. LORAZEPAM [Concomitant]
     Dosage: 1 MG, 2X/DAY
     Route: 048
  5. ENANTYUM [Concomitant]
     Dosage: 25 MG, UNK
  6. LYRICA [Suspect]
     Dosage: 75 MG, 2X/DAY
     Route: 048
  7. ADOLONTA - SLOW RELEASE [Concomitant]
     Dosage: 150 MG, 1X/DAY
     Route: 048
  8. VOLTAREN [Concomitant]
  9. ENALAPRIL MALEATE AND HYDROCHLOROTHIAZIDE [Concomitant]
  10. DEPRAX [Suspect]
     Dosage: 100 MG, 1X/DAY
     Route: 048

REACTIONS (4)
  - VENTRICULAR FIBRILLATION [None]
  - LONG QT SYNDROME [None]
  - CARDIAC ARREST [None]
  - MYOCARDIAL INFARCTION [None]
